FAERS Safety Report 15088550 (Version 2)
Quarter: 2018Q3

REPORT INFORMATION
  Report Type: Spontaneous
  Country: FR (occurrence: FR)
  Receive Date: 20180629
  Receipt Date: 20180719
  Transmission Date: 20181010
  Serious: Yes (Hospitalization)
  Sender: FDA-Public Use
  Company Number: FR-009507513-1806FRA011000

PATIENT
  Age: 60 Year
  Sex: Male

DRUGS (8)
  1. AERIUS [Suspect]
     Active Substance: DESLORATADINE
     Indication: NASOPHARYNGITIS
     Dosage: UNKNOWN
     Route: 048
     Dates: start: 20180113, end: 20180113
  2. SOLUPRED (METHYLPREDNISOLONE SODIUM SUCCINATE) [Suspect]
     Active Substance: METHYLPREDNISOLONE
     Indication: NASOPHARYNGITIS
     Dosage: UNKNOWN
     Route: 048
     Dates: start: 20180113, end: 20180113
  3. AMAREL [Concomitant]
     Active Substance: GLIMEPIRIDE
     Dosage: 1 DF, UNK
     Route: 048
  4. ASPIRINE [Concomitant]
     Active Substance: ASPIRIN
     Dosage: 100 MG, UNK
     Route: 048
  5. PERMIXON [Concomitant]
     Active Substance: HERBALS\SAW PALMETTO
     Dosage: UNKNOWN
     Route: 048
  6. TAHOR [Concomitant]
     Active Substance: ATORVASTATIN CALCIUM
     Dosage: 1 DF, UNK
     Route: 048
  7. EXFORGE [Concomitant]
     Active Substance: AMLODIPINE BESYLATE\VALSARTAN
     Dosage: 1 DF, UNK
     Route: 048
  8. AUGMENTIN [Suspect]
     Active Substance: AMOXICILLIN\CLAVULANATE POTASSIUM
     Indication: NASOPHARYNGITIS
     Dosage: UNKNOWN
     Route: 048
     Dates: start: 20180113, end: 20180113

REACTIONS (3)
  - Drug hypersensitivity [Recovered/Resolved]
  - Pruritus [Recovered/Resolved]
  - Generalised erythema [Recovered/Resolved]

NARRATIVE: CASE EVENT DATE: 20180113
